FAERS Safety Report 13009612 (Version 2)
Quarter: 2016Q4

REPORT INFORMATION
  Report Type: Report from Study
  Country: JP (occurrence: JP)
  Receive Date: 20161208
  Receipt Date: 20161214
  Transmission Date: 20170207
  Serious: Yes (Hospitalization)
  Sender: FDA-Public Use
  Company Number: JP-PFIZER INC-2016563499

PATIENT
  Age: 52 Year
  Sex: Female
  Weight: 46 kg

DRUGS (16)
  1. DEXMEDETOMIDINE HYDROCHLORIDE. [Suspect]
     Active Substance: DEXMEDETOMIDINE HYDROCHLORIDE
     Dosage: UNK
     Dates: start: 20151026
  2. PROPOFOL. [Suspect]
     Active Substance: PROPOFOL
     Dosage: UNK
     Dates: start: 20151026
  3. PREDNISOLONE. [Suspect]
     Active Substance: PREDNISOLONE
     Dosage: 2 MG, DAILY
     Route: 048
     Dates: end: 20151217
  4. PREDNISOLONE. [Suspect]
     Active Substance: PREDNISOLONE
     Dosage: 1 MG, DAILY
     Route: 048
     Dates: start: 20151218, end: 20151231
  5. SAXIZON [Suspect]
     Active Substance: HYDROCORTISONE SODIUM SUCCINATE
     Dosage: UNK
     Dates: start: 20151026
  6. SALINE [Suspect]
     Active Substance: SODIUM CHLORIDE
     Dosage: UNK
     Dates: start: 20151026
  7. MARCAINE [Suspect]
     Active Substance: BUPIVACAINE HYDROCHLORIDE
     Dosage: UNK
     Dates: start: 20151026
  8. NEXIUM [Concomitant]
     Active Substance: ESOMEPRAZOLE MAGNESIUM
     Route: 048
  9. METHOTREXATE SODIUM. [Suspect]
     Active Substance: METHOTREXATE SODIUM
     Dosage: 6 MG, WEEKLY
     Route: 048
     Dates: start: 20160121
  10. CARBOCAINE [Suspect]
     Active Substance: MEPIVACAINE HYDROCHLORIDE
     Dosage: UNK
     Dates: start: 20151026
  11. PIPERACILLIN [Suspect]
     Active Substance: PIPERACILLIN
     Dosage: UNK
     Dates: start: 20151026
  12. ORENSIA [Concomitant]
     Active Substance: ABATACEPT
     Dosage: UNK
     Route: 048
     Dates: start: 20110707, end: 20151014
  13. XELJANZ [Suspect]
     Active Substance: TOFACITINIB CITRATE
     Indication: RHEUMATOID ARTHRITIS
     Dosage: 5 MG, 2X/DAY
     Route: 048
     Dates: start: 20151016
  14. METHOTREXATE SODIUM. [Suspect]
     Active Substance: METHOTREXATE SODIUM
     Indication: RHEUMATOID ARTHRITIS
     Dosage: 8 MG, WEEKLY
     Route: 048
     Dates: end: 20160120
  15. EPHEDRINE. [Suspect]
     Active Substance: EPHEDRINE
     Dosage: UNK
     Dates: start: 20151026
  16. MAGMITT [Concomitant]
     Active Substance: MAGNESIUM OXIDE
     Route: 048

REACTIONS (2)
  - Femoral neck fracture [Recovering/Resolving]
  - Hepatic function abnormal [Recovered/Resolved]

NARRATIVE: CASE EVENT DATE: 20151018
